FAERS Safety Report 19905466 (Version 1)
Quarter: 2021Q3

REPORT INFORMATION
  Report Type: Report from Study
  Country: US (occurrence: US)
  Receive Date: 20210930
  Receipt Date: 20210930
  Transmission Date: 20211014
  Serious: No
  Sender: FDA-Public Use
  Company Number: NVSC2021US221283

PATIENT
  Sex: Male

DRUGS (1)
  1. COSENTYX [Suspect]
     Active Substance: SECUKINUMAB
     Indication: PSORIASIS
     Dosage: 300 MG (ONCE A WEEK FOR 5 WEEKS, THEN ONCE EVERY MONTH)
     Route: 058

REACTIONS (4)
  - Psoriasis [Unknown]
  - Skin discolouration [Unknown]
  - Drug ineffective [Unknown]
  - Dry skin [Unknown]
